FAERS Safety Report 8017749-4 (Version None)
Quarter: 2012Q1

REPORT INFORMATION
  Report Type: 
  Country: None (occurrence: None)
  Receive Date: 20120103
  Receipt Date: 20111230
  Transmission Date: 20120608
  Serious: No
  Sender: FDA-Public Use
  Company Number: US-PFIZER INC-2011311489

PATIENT
  Sex: Female
  Weight: 65.76 kg

DRUGS (6)
  1. FLECTOR [Suspect]
     Indication: ARTHRALGIA
     Dosage: UNK
     Route: 061
     Dates: start: 20111218, end: 20111224
  2. MAXZIDE [Concomitant]
     Indication: HYPERTENSION
     Dosage: UNK
  3. LISINOPRIL [Concomitant]
     Dosage: 10 MG, 1X/DAY
  4. XANAX [Concomitant]
     Dosage: UNK
  5. SIMVASTATIN [Concomitant]
     Indication: BLOOD CHOLESTEROL INCREASED
     Dosage: 40 MG, 1X/DAY
  6. SERTRALINE [Concomitant]
     Dosage: 50 MG, 1X/DAY

REACTIONS (1)
  - RASH [None]
